FAERS Safety Report 5554006-X (Version None)
Quarter: 2007Q4

REPORT INFORMATION
  Report Type: 
  Country: None (occurrence: None)
  Receive Date: 20071213
  Receipt Date: 20071130
  Transmission Date: 20080405
  Serious: Yes (Hospitalization)
  Sender: FDA-Public Use
  Company Number: US-AMGEN-US254897

PATIENT
  Sex: Female
  Weight: 84.6 kg

DRUGS (7)
  1. ARANESP [Suspect]
     Indication: ANAEMIA OF MALIGNANT DISEASE
     Route: 058
     Dates: start: 20050421
  2. PROCRIT [Suspect]
     Indication: ANAEMIA OF MALIGNANT DISEASE
     Route: 058
  3. CYTOXAN [Concomitant]
     Indication: BREAST CANCER
     Route: 065
  4. PACLITAXEL [Concomitant]
     Indication: BREAST CANCER
     Route: 065
  5. NEULASTA [Concomitant]
     Route: 065
     Dates: start: 20050422
  6. CIPRO [Concomitant]
     Route: 065
     Dates: start: 20050428
  7. ADRIAMYCIN PFS [Concomitant]
     Route: 065
     Dates: start: 20050421

REACTIONS (2)
  - DEEP VEIN THROMBOSIS [None]
  - SEPSIS [None]
